FAERS Safety Report 7167453-X (Version None)
Quarter: 2010Q4

REPORT INFORMATION
  Report Type: 
  Country: None (occurrence: None)
  Receive Date: 20101216
  Receipt Date: 20100104
  Transmission Date: 20110411
  Serious: No
  Sender: FDA-Public Use
  Company Number: A0837372A

PATIENT
  Age: 59 Year
  Sex: Female

DRUGS (1)
  1. NICOTINE POLACRILEX [Suspect]

REACTIONS (1)
  - GINGIVAL SWELLING [None]
